FAERS Safety Report 9783467 (Version 2)
Quarter: 2013Q4

REPORT INFORMATION
  Report Type: Spontaneous
  Country: DE (occurrence: DE)
  Receive Date: 20131226
  Receipt Date: 20131231
  Transmission Date: 20140711
  Serious: Yes (Life-Threatening, Hospitalization)
  Sender: FDA-Public Use
  Company Number: US-ASTRAZENECA-2013SE92819

PATIENT
  Age: 2 Year
  Sex: Female

DRUGS (4)
  1. SYNAGIS [Suspect]
     Indication: PRODUCT USED FOR UNKNOWN INDICATION
     Dosage: 11 SEPARATE DOSE
     Route: 030
     Dates: start: 20121026, end: 20130409
  2. PREVENAR [Suspect]
     Indication: IMMUNISATION
     Dosage: 4 SEPARATE DOSE
     Dates: start: 20111124, end: 20120717
  3. ROTATEQ [Suspect]
     Indication: IMMUNISATION
     Dosage: 3 SEPARATE DOSE
     Dates: start: 20111124, end: 20120314
  4. INFANRIX HEXA [Suspect]
     Indication: IMMUNISATION
     Dosage: 4 SEPARATE DOSE
     Dates: start: 20111124, end: 20131031

REACTIONS (1)
  - Fungal infection [Not Recovered/Not Resolved]
